FAERS Safety Report 4399604-4 (Version None)
Quarter: 2004Q3

REPORT INFORMATION
  Report Type: 
  Country: None (occurrence: None)
  Receive Date: 20040716
  Receipt Date: 20040706
  Transmission Date: 20050211
  Serious: Yes (Other)
  Sender: FDA-Public Use
  Company Number: ES-BRISTOL-MYERS SQUIBB COMPANY-12632048

PATIENT
  Age: 41 Year
  Sex: Male

DRUGS (3)
  1. STAVUDINE [Suspect]
     Dates: start: 20011001, end: 20020101
  2. LAMIVUDINE [Suspect]
     Dates: start: 20011001, end: 20020101
  3. LOPINAVIR + RITONAVIR [Suspect]
     Dates: start: 20011001, end: 20020101

REACTIONS (3)
  - CUTANEOUS SARCOIDOSIS [None]
  - HYPERGAMMAGLOBULINAEMIA [None]
  - UVEITIS [None]
